FAERS Safety Report 7907459-3 (Version None)
Quarter: 2011Q4

REPORT INFORMATION
  Report Type: 
  Country: None (occurrence: None)
  Receive Date: 20111109
  Receipt Date: 20111109
  Transmission Date: 20120403
  Serious: Yes (Hospitalization)
  Sender: FDA-Public Use
  Company Number: None

PATIENT
  Sex: Male
  Weight: 70 kg

DRUGS (1)
  1. CISPLATIN [Suspect]
     Dosage: 400 MG
     Dates: end: 20071127

REACTIONS (5)
  - RENAL FAILURE ACUTE [None]
  - DEHYDRATION [None]
  - BLOOD PRESSURE DECREASED [None]
  - ASTHENIA [None]
  - DIARRHOEA [None]
